FAERS Safety Report 9643263 (Version 1)
Quarter: 2013Q4

REPORT INFORMATION
  Report Type: Spontaneous
  Country: US (occurrence: US)
  Receive Date: 20131024
  Receipt Date: 20131024
  Transmission Date: 20140711
  Serious: Yes (Other)
  Sender: FDA-Public Use
  Company Number: US-PFIZER INC-2013300372

PATIENT
  Age: 48 Year
  Sex: Male
  Weight: 86.17 kg

DRUGS (8)
  1. XANAX [Suspect]
     Indication: ANXIETY
     Dosage: 0.5 MG OR 1 MG, UNKNOWN FREQUENCY
     Dates: start: 2000
  2. XANAX [Suspect]
     Dosage: 2 MG, UNK
     Dates: end: 2012
  3. OXYCODONE HYDROCHLORIDE [Suspect]
     Indication: PAIN
     Dosage: 30 MG, 3X/DAY
     Dates: start: 2002
  4. OXYCODONE HYDROCHLORIDE [Suspect]
     Dosage: 35 MG, 2X/DAY
  5. ADDERALL [Concomitant]
     Indication: ATTENTION DEFICIT/HYPERACTIVITY DISORDER
     Dosage: UNK
  6. CELEXA [Concomitant]
     Indication: DEPRESSION
     Dosage: UNK
  7. AMBIEN [Concomitant]
     Indication: SLEEP DISORDER
     Dosage: UNK, EVERY THREE DAYS
  8. TESTOSTERONE CIPIONATE [Concomitant]
     Dosage: UNK

REACTIONS (5)
  - Fall [Unknown]
  - Skull fracture [Unknown]
  - Vomiting [Recovered/Resolved]
  - Arthropathy [Unknown]
  - Neck pain [Unknown]
